FAERS Safety Report 5049466-7 (Version None)
Quarter: 2006Q3

REPORT INFORMATION
  Report Type: 
  Country: None (occurrence: None)
  Receive Date: 20060711
  Receipt Date: 20060711
  Transmission Date: 20061208
  Serious: Yes (Death)
  Sender: FDA-Public Use
  Company Number: None

PATIENT
  Age: 32 Year
  Sex: Male
  Weight: 83.0083 kg

DRUGS (2)
  1. WELLBUTRIN XL [Suspect]
     Indication: SMOKING CESSATION THERAPY
     Dosage: 300 MG DAILY PO
     Route: 048
     Dates: start: 20060506, end: 20060513
  2. LAMISIL [Concomitant]

REACTIONS (3)
  - CONVULSION [None]
  - HEAD INJURY [None]
  - LIMB INJURY [None]
